FAERS Safety Report 18901366 (Version 1)
Quarter: 2021Q1

REPORT INFORMATION
  Report Type: Spontaneous
  Country: TR (occurrence: TR)
  Receive Date: 20210217
  Receipt Date: 20210217
  Transmission Date: 20210420
  Serious: Yes (Other)
  Sender: FDA-Public Use
  Company Number: TR-SUN PHARMACEUTICAL INDUSTRIES LTD-2021RR-280787

PATIENT
  Age: 37 Year
  Sex: Female

DRUGS (3)
  1. AZITHROMYCIN ANHYDROUS. [Suspect]
     Active Substance: AZITHROMYCIN ANHYDROUS
     Indication: COVID-19 TREATMENT
     Dosage: DAY 1: 1X 500 MG, DAY 2?4: 1X 250 MG
     Route: 065
  2. OSELTAMIVIR [Suspect]
     Active Substance: OSELTAMIVIR
     Indication: COVID-19 TREATMENT
     Dosage: 2X 75 MG
     Route: 065
  3. HYDROXYCHLOROQUINE [Suspect]
     Active Substance: HYDROXYCHLOROQUINE
     Indication: COVID-19 TREATMENT
     Dosage: DAY 1: 2X 400MG, DAY 2?4: 2X200MG
     Route: 065

REACTIONS (2)
  - Off label use [Unknown]
  - Erythema multiforme [Recovered/Resolved]
